FAERS Safety Report 7044939-X (Version None)
Quarter: 2010Q4

REPORT INFORMATION
  Report Type: 
  Country: None (occurrence: None)
  Receive Date: 20101014
  Receipt Date: 20101004
  Transmission Date: 20110411
  Serious: Yes (Other)
  Sender: FDA-Public Use
  Company Number: PHHY2010CA66298

PATIENT
  Sex: Female

DRUGS (3)
  1. ALISKIREN ALI+ [Suspect]
     Dosage: 150 MG, UNK
     Route: 048
     Dates: start: 20100519, end: 20100524
  2. AMLODIPINE [Concomitant]
     Dosage: UNK
     Dates: start: 20100519, end: 20100524
  3. VALSARTAN [Concomitant]
     Dosage: 160 MG, UNK
     Dates: start: 20100519, end: 20100524

REACTIONS (1)
  - MUSCLE SPASMS [None]
